FAERS Safety Report 6097396-4 (Version None)
Quarter: 2009Q1

REPORT INFORMATION
  Report Type: 
  Country: None (occurrence: None)
  Receive Date: 20090227
  Receipt Date: 20080228
  Transmission Date: 20090719
  Serious: No
  Sender: FDA-Public Use
  Company Number: A0712441A

PATIENT
  Age: 20 Year
  Sex: Female

DRUGS (3)
  1. IMITREX [Suspect]
     Indication: MIGRAINE
     Dosage: 1INJ AS REQUIRED
     Route: 058
     Dates: start: 19920101
  2. IMITREX [Suspect]
     Dosage: 50MG AS REQUIRED
     Route: 048
     Dates: start: 19920101
  3. NO CONCURRENT MEDICATION [Concomitant]

REACTIONS (2)
  - DRUG INEFFECTIVE [None]
  - INJECTION SITE PAIN [None]
